FAERS Safety Report 18808584 (Version 5)
Quarter: 2025Q3

REPORT INFORMATION
  Report Type: Spontaneous
  Country: US (occurrence: US)
  Receive Date: 20210129
  Receipt Date: 20250903
  Transmission Date: 20251021
  Serious: Yes (Other)
  Sender: SUNOVION
  Company Number: US-SUNOVION-2021SUN000197

PATIENT
  Age: 48 Year
  Sex: Female

DRUGS (1)
  1. LATUDA [Suspect]
     Active Substance: LURASIDONE HYDROCHLORIDE
     Indication: Product used for unknown indication
     Dosage: 20 MG, QD
     Route: 048

REACTIONS (5)
  - Brain injury [Unknown]
  - Blood glucose increased [Unknown]
  - Fall [Unknown]
  - Memory impairment [Unknown]
  - Dysarthria [Unknown]
